FAERS Safety Report 9252697 (Version 1)
Quarter: 2013Q1

REPORT INFORMATION
  Report Type: Spontaneous
  Country: US (occurrence: None)
  Receive Date: 20130305
  Receipt Date: 20130305
  Transmission Date: 20140127
  Serious: Yes (Disabling)
  Sender: FDA-Public Use
  Company Number: 163-21880-12042100 (0)

PATIENT
  Age: 77 Year
  Sex: Male
  Weight: 73.94 kg

DRUGS (6)
  1. REVLIMID [Suspect]
     Indication: PLASMA CELL MYELOMA
     Dosage: 1 IN 1 D
     Route: 048
     Dates: start: 20111228
  2. METFORMIN (METFORMIN) [Concomitant]
  3. NOVOLOG (INSULIN ASPART) [Concomitant]
  4. BACTRIM DS (BACTRIM) (TABLETS) [Concomitant]
  5. ACYCLOVIR (ACICLOVIR) [Concomitant]
  6. LEVOTHYROXINE (LEVOTHYROXINE) [Concomitant]

REACTIONS (1)
  - Fatigue [None]
